FAERS Safety Report 4705476-8 (Version None)
Quarter: 2005Q3

REPORT INFORMATION
  Report Type: 
  Country: None (occurrence: None)
  Receive Date: 20050701
  Receipt Date: 20050429
  Transmission Date: 20060218
  Serious: Yes (Other)
  Sender: FDA-Public Use
  Company Number: PHBS2005BE06242

PATIENT
  Age: 42 Year
  Sex: Female

DRUGS (3)
  1. EFFEXOR [Concomitant]
  2. ZOMETA [Suspect]
     Indication: METASTASES TO BONE
     Route: 042
     Dates: start: 20021018, end: 20050318
  3. FEMARA [Suspect]
     Indication: MALIGNANT NEOPLASM PROGRESSION
     Route: 065
     Dates: start: 20040701

REACTIONS (9)
  - ASEPTIC NECROSIS BONE [None]
  - BONE DISORDER [None]
  - FISTULA [None]
  - IMPAIRED HEALING [None]
  - MALIGNANT NEOPLASM PROGRESSION [None]
  - MUCOSAL EROSION [None]
  - PAIN IN JAW [None]
  - PURULENT DISCHARGE [None]
  - TOOTH EXTRACTION [None]
